FAERS Safety Report 21491527 (Version 4)
Quarter: 2023Q1

REPORT INFORMATION
  Report Type: Spontaneous
  Country: US (occurrence: US)
  Receive Date: 20221021
  Receipt Date: 20230227
  Transmission Date: 20230417
  Serious: No
  Sender: FDA-Public Use
  Company Number: US-PFIZER INC-PV202200086767

PATIENT
  Age: 83 Year
  Sex: Male
  Weight: 58.05 kg

DRUGS (1)
  1. RETACRIT [Suspect]
     Active Substance: EPOETIN ALFA-EPBX
     Indication: Chronic kidney disease
     Dosage: 10000 IU, WEEKLY
     Route: 058
     Dates: start: 202107

REACTIONS (2)
  - Hypoacusis [Unknown]
  - Off label use [Unknown]
